FAERS Safety Report 10228485 (Version 1)
Quarter: 2014Q2

REPORT INFORMATION
  Report Type: Spontaneous
  Country: GB (occurrence: GB)
  Receive Date: 20140610
  Receipt Date: 20140610
  Transmission Date: 20141212
  Serious: Yes (Other)
  Sender: FDA-Public Use
  Company Number: GB-PERRIGO-14GB005729

PATIENT
  Age: 18 Year
  Sex: Male

DRUGS (8)
  1. MORPHINE SULFATE 20 MG/ML 0L8 [Suspect]
     Indication: PAIN
     Dosage: 10 MG, SINGLE
     Route: 048
  2. MORPHINE SULFATE 20 MG/ML 0L8 [Suspect]
     Dosage: 60 MG, SINGLE
     Route: 048
  3. MORPHINE SULFATE 20 MG/ML 0L8 [Suspect]
     Dosage: 15 MG, SINGLE
     Route: 048
  4. MORPHINE SULFATE 20 MG/ML 0L8 [Suspect]
     Dosage: 50 MG, SINGLE
     Route: 048
  5. CODEINE [Suspect]
     Indication: PAIN
     Dosage: 30 MG, QID
     Route: 065
  6. CODEINE [Suspect]
     Dosage: 30 MG, SINGLE
     Route: 065
  7. MORPHINE [Suspect]
     Indication: PAIN
     Dosage: 3 MG, SINGLE
     Route: 042
  8. TRAMADOL [Concomitant]
     Indication: PAIN
     Dosage: 100 MG DIVIDED DOSES
     Route: 065

REACTIONS (2)
  - Adrenal suppression [Recovered/Resolved]
  - Adrenal insufficiency [Recovered/Resolved]
